FAERS Safety Report 9380980 (Version 1)
Quarter: 2013Q3

REPORT INFORMATION
  Report Type: Spontaneous
  Country: JP (occurrence: JP)
  Receive Date: 20130703
  Receipt Date: 20130703
  Transmission Date: 20140515
  Serious: Yes (Other)
  Sender: FDA-Public Use
  Company Number: JP-ROCHE-1242609

PATIENT
  Age: 59 Year
  Sex: 0

DRUGS (4)
  1. XELODA [Suspect]
     Indication: COLON CANCER
     Dosage: DOSAGE IS UNCERTAIN.
     Route: 048
  2. XELODA [Suspect]
     Indication: COLON CANCER
     Dosage: DOSAGE IS UNCERTAIN, SECOND COURSE
     Route: 048
     Dates: start: 201306
  3. OXALIPLATIN [Concomitant]
     Indication: COLON CANCER
     Dosage: DOSAGE IS UNCERTAIN.
     Route: 041
  4. OXALIPLATIN [Concomitant]
     Indication: COLON CANCER
     Dosage: DOSAGE IS UNCERTAIN, SECOND COURSE
     Route: 041
     Dates: start: 201306

REACTIONS (3)
  - Senile psychosis [Unknown]
  - Mental status changes [Unknown]
  - Decreased appetite [Recovering/Resolving]
